FAERS Safety Report 12467239 (Version 1)
Quarter: 2016Q2

REPORT INFORMATION
  Report Type: Spontaneous
  Country: US (occurrence: US)
  Receive Date: 20160615
  Receipt Date: 20160615
  Transmission Date: 20160815
  Serious: Yes (Other)
  Sender: FDA-Public Use
  Company Number: US-PROCTER_AND_GAMBLE-GS16073066

PATIENT
  Age: 28 Year
  Sex: Female

DRUGS (4)
  1. CRESTDENTIFRICEBASEPROHEALTHENAMEL SHIELD [Suspect]
     Active Substance: SODIUM FLUORIDE
     Dosage: HALF A BRUSH HEAD SIZE, 2-4 /DAY; 1-2 TUBES OF TOOTHPASTE A MONTH
     Route: 002
     Dates: end: 20160520
  2. CREST PRO-HEALTH CLINICAL [Suspect]
     Active Substance: CETYLPYRIDINIUM CHLORIDE
     Dosage: 2 TEASPOONS
     Route: 002
     Dates: end: 20160520
  3. VITAMINS [Concomitant]
     Active Substance: VITAMINS
  4. CREST PRO-HEALTH RINSE [Suspect]
     Active Substance: CETYLPYRIDINIUM CHLORIDE
     Dosage: 2 TEASPOONS
     Route: 002
     Dates: end: 20160520

REACTIONS (12)
  - Gingival disorder [Recovered/Resolved]
  - Sensitivity of teeth [Recovered/Resolved]
  - Tooth disorder [Recovered/Resolved]
  - Gingival bleeding [Recovered/Resolved]
  - Gingival pain [Recovered/Resolved]
  - Dental caries [Recovering/Resolving]
  - Condition aggravated [Recovered/Resolved]
  - Tooth fracture [Recovering/Resolving]
  - Tooth discolouration [Not Recovered/Not Resolved]
  - Oral disorder [Recovered/Resolved]
  - Oral mucosal exfoliation [Recovered/Resolved]
  - Toothache [Recovered/Resolved]

NARRATIVE: CASE EVENT DATE: 201604
